FAERS Safety Report 23379108 (Version 2)
Quarter: 2024Q2

REPORT INFORMATION
  Report Type: Spontaneous
  Country: US (occurrence: US)
  Receive Date: 20240108
  Receipt Date: 20240605
  Transmission Date: 20240716
  Serious: No
  Sender: FDA-Public Use
  Company Number: US-BRISTOL-MYERS SQUIBB COMPANY-2024-003433

PATIENT
  Age: 45 Year
  Sex: Male

DRUGS (3)
  1. ZEPOSIA [Suspect]
     Active Substance: OZANIMOD HYDROCHLORIDE
     Indication: Proctitis ulcerative
     Dosage: 1 TIME A DAY FOR 4 DAYS.
     Route: 048
  2. ZEPOSIA [Suspect]
     Active Substance: OZANIMOD HYDROCHLORIDE
     Dosage: 1 TIME A DAY FOR 3 DAYS.
     Route: 048
  3. ZEPOSIA [Suspect]
     Active Substance: OZANIMOD HYDROCHLORIDE
     Dosage: ZEPOSIA (7 DAY STARTER PAK): 0.92 MG START DATE FOR NOV-2023.
     Route: 048
     Dates: start: 202311

REACTIONS (3)
  - Nausea [Unknown]
  - Fatigue [Unknown]
  - Dizziness [Unknown]
